FAERS Safety Report 7682645-9 (Version None)
Quarter: 2011Q3

REPORT INFORMATION
  Report Type: 
  Country: None (occurrence: None)
  Receive Date: 20110815
  Receipt Date: 20110805
  Transmission Date: 20111222
  Serious: Yes (Other)
  Sender: FDA-Public Use
  Company Number: PHHY2010CA56004

PATIENT
  Sex: Female

DRUGS (10)
  1. SANDOSTATIN LAR [Suspect]
     Dosage: 10 MG, UNK
     Route: 030
  2. SANDOSTATIN LAR [Suspect]
     Dosage: 10 MG, UNK
     Route: 030
     Dates: start: 20101231
  3. SANDOSTATIN LAR [Suspect]
     Dosage: 20 MG, BIW
     Route: 030
  4. SANDOSTATIN LAR [Suspect]
     Indication: CARCINOID SYNDROME
     Dosage: 20 MG, QMO
     Route: 030
     Dates: start: 20090713
  5. SANDOSTATIN LAR [Suspect]
     Dosage: 10 MG, QW
     Route: 030
  6. SANDOSTATIN LAR [Suspect]
     Dosage: 10 MG, EVERY 10 DAYS
     Route: 030
     Dates: end: 20100922
  7. SANDOSTATIN LAR [Suspect]
     Dosage: 10 MG EVERY OTHER WEEK
     Route: 030
  8. SANDOSTATIN LAR [Suspect]
     Route: 030
     Dates: start: 20101017
  9. SANDOSTATIN LAR [Suspect]
     Dosage: 10 MG, WEEKLY
     Route: 030
  10. SANDOSTATIN LAR [Suspect]
     Dosage: 10 MG, QW
     Route: 030

REACTIONS (29)
  - FRACTURE [None]
  - NECK PAIN [None]
  - ABDOMINAL DISTENSION [None]
  - ABASIA [None]
  - DYSPNOEA [None]
  - HEART RATE IRREGULAR [None]
  - SKIN IRRITATION [None]
  - BLOOD PRESSURE SYSTOLIC INCREASED [None]
  - INCORRECT DOSE ADMINISTERED [None]
  - ABDOMINAL DISCOMFORT [None]
  - GASTROINTESTINAL SOUNDS ABNORMAL [None]
  - HEADACHE [None]
  - CONTUSION [None]
  - GASTROINTESTINAL MOTILITY DISORDER [None]
  - FATIGUE [None]
  - FLUSHING [None]
  - OEDEMA PERIPHERAL [None]
  - DIARRHOEA [None]
  - POLLAKIURIA [None]
  - JOINT SWELLING [None]
  - MALAISE [None]
  - HYPOPHAGIA [None]
  - FALL [None]
  - JOINT INJURY [None]
  - ABDOMINAL PAIN [None]
  - FEELING COLD [None]
  - CHILLS [None]
  - ORAL MUCOSAL ERYTHEMA [None]
  - LETHARGY [None]
